FAERS Safety Report 21653347 (Version 2)
Quarter: 2023Q2

REPORT INFORMATION
  Report Type: Spontaneous
  Country: US (occurrence: US)
  Receive Date: 20221128
  Receipt Date: 20230412
  Transmission Date: 20230722
  Serious: No
  Sender: FDA-Public Use
  Company Number: US-ABBVIE-4215605

PATIENT
  Age: 66 Year
  Sex: Male
  Weight: 94 kg

DRUGS (4)
  1. IBRUTINIB [Suspect]
     Active Substance: IBRUTINIB
     Indication: Lymphoma
     Route: 048
     Dates: start: 20200610, end: 20221102
  2. PREDNISONE [Concomitant]
     Active Substance: PREDNISONE
     Indication: Rash pruritic
     Route: 048
     Dates: start: 20221102
  3. PREDNISONE [Concomitant]
     Active Substance: PREDNISONE
     Indication: Rash pruritic
     Route: 048
     Dates: start: 20221024, end: 20221102
  4. AMOXICILLIN [Concomitant]
     Active Substance: AMOXICILLIN
     Indication: Folliculitis
     Dates: start: 20221024, end: 20221124

REACTIONS (5)
  - Urticaria [Recovered/Resolved]
  - Scab [Unknown]
  - Pustule [Unknown]
  - Neutrophilic dermatosis [Unknown]
  - Rash papular [Unknown]

NARRATIVE: CASE EVENT DATE: 20220916
